FAERS Safety Report 24862721 (Version 2)
Quarter: 2025Q1

REPORT INFORMATION
  Report Type: Spontaneous
  Country: NO (occurrence: NO)
  Receive Date: 20250120
  Receipt Date: 20250206
  Transmission Date: 20250408
  Serious: Yes (Hospitalization, Other)
  Sender: ALEXION PHARMACEUTICALS
  Company Number: NO-AstraZeneca-CH-00784212A

PATIENT
  Age: 43 Year

DRUGS (1)
  1. LYNPARZA [Suspect]
     Active Substance: OLAPARIB
     Indication: Cholangiocarcinoma
     Route: 065

REACTIONS (4)
  - Post procedural infection [Unknown]
  - Malignant neoplasm progression [Unknown]
  - Off label use [Unknown]
  - Ascites [Unknown]
